FAERS Safety Report 4510632-8 (Version None)
Quarter: 2004Q4

REPORT INFORMATION
  Report Type: 
  Country: None (occurrence: None)
  Receive Date: 20041122
  Receipt Date: 20041103
  Transmission Date: 20050328
  Serious: Yes (Death, Hospitalization)
  Sender: FDA-Public Use
  Company Number: ATO-04-0879

PATIENT
  Age: 62 Year
  Sex: Male

DRUGS (1)
  1. TRISENOX [Suspect]
     Indication: MULTIPLE MYELOMA

REACTIONS (7)
  - ANAEMIA [None]
  - EPISTAXIS [None]
  - INFECTION [None]
  - MALIGNANT NEOPLASM PROGRESSION [None]
  - MULTIPLE MYELOMA [None]
  - RENAL FAILURE [None]
  - THROMBOCYTOPENIA [None]
